FAERS Safety Report 16739095 (Version 1)
Quarter: 2019Q3

REPORT INFORMATION
  Report Type: Spontaneous
  Country: DE (occurrence: DE)
  Receive Date: 20190826
  Receipt Date: 20190826
  Transmission Date: 20191005
  Serious: Yes (Death, Life-Threatening, Other)
  Sender: FDA-Public Use
  Company Number: DE-TEVA-2019-DE-1096409

PATIENT
  Age: 8 Month
  Sex: Male
  Weight: 7.2 kg

DRUGS (12)
  1. ADRIAMYCIN [Suspect]
     Active Substance: DOXORUBICIN HYDROCHLORIDE
     Dosage: 5 A.M. AND 4 P.M. (4.8 MILLIGRAM)
     Route: 042
     Dates: start: 20190710
  2. COTRIM [Concomitant]
     Active Substance: SULFAMETHOXAZOLE\TRIMETHOPRIM
     Dosage: 2X20MG TMP
  3. IFOSFAMID [Suspect]
     Active Substance: IFOSFAMIDE
     Dosage: WITH NACL FREEFLEX 50ML (720 MILLIGRAM)
     Route: 042
     Dates: start: 20190709
  4. FUROSEMID [Concomitant]
     Active Substance: FUROSEMIDE
     Dosage: 4 MILLIGRAM
     Route: 042
  5. VINCRISTIN [Suspect]
     Active Substance: VINCRISTINE
     Dosage: (0.36 MILLIGRAM)
     Route: 042
     Dates: start: 20190723
  6. VINCRISTIN [Suspect]
     Active Substance: VINCRISTINE
     Dosage: WITH NACL ECOBAG 17ML (0.36 MILLIGRAM)
     Route: 042
     Dates: start: 20190709
  7. IFOSFAMID [Suspect]
     Active Substance: IFOSFAMIDE
     Dosage: WITH NACL FREEFLEX 50ML (720 MILLIGRAM)
     Route: 042
     Dates: start: 20190710
  8. KEVATRIL [Concomitant]
     Active Substance: GRANISETRON HYDROCHLORIDE
     Indication: ANTIEMETIC SUPPORTIVE CARE
     Dosage: 0. MG/D I.V/P.O (0.2 MILLIGRAM)
  9. VINCRISTIN [Suspect]
     Active Substance: VINCRISTINE
     Dosage: WITH NACL ECOBAG 17ML (0.36 MILLIGRAM)
     Route: 042
     Dates: start: 20190716
  10. ADRIAMYCIN [Suspect]
     Active Substance: DOXORUBICIN HYDROCHLORIDE
     Dosage: 4.8 MILLIGRAM
     Route: 042
     Dates: start: 20190709
  11. ADRIAMYCIN [Suspect]
     Active Substance: DOXORUBICIN HYDROCHLORIDE
     Dosage: 4.8 MILLIGRAM
     Route: 042
     Dates: start: 20190711
  12. MESNA. [Concomitant]
     Active Substance: MESNA
     Dosage: 180 MILLIGRAM
     Route: 042
     Dates: start: 20190709

REACTIONS (4)
  - Renal failure [Fatal]
  - Respiratory failure [Fatal]
  - Sepsis [Fatal]
  - Hypertension [Fatal]
